FAERS Safety Report 9278229 (Version 2)
Quarter: 2013Q2

REPORT INFORMATION
  Report Type: Spontaneous
  Country: CA (occurrence: CA)
  Receive Date: 20130508
  Receipt Date: 20130628
  Transmission Date: 20140414
  Serious: Yes (Hospitalization)
  Sender: FDA-Public Use
  Company Number: CA-AMGEN-CANSP2013031630

PATIENT
  Age: 94 Year
  Sex: Female

DRUGS (7)
  1. ENBREL [Suspect]
     Indication: RHEUMATOID ARTHRITIS
     Dosage: 50 MG, QWK
     Route: 058
     Dates: start: 20090506, end: 201303
  2. D [Concomitant]
     Dosage: 1000 UNIT, QWK
  3. METHOTREXATE [Concomitant]
     Indication: RHEUMATOID ARTHRITIS
     Dosage: 25 MG, QWK
     Route: 058
  4. FOLIC ACID [Concomitant]
     Dosage: 5 MG, 6 DAYS/7
  5. PLAQUENIL                          /00072602/ [Concomitant]
     Indication: RHEUMATOID ARTHRITIS
     Dosage: 200 MG, 6 DAYS/7
  6. ACLASTA [Concomitant]
     Indication: OSTEOPOROSIS
     Dosage: 1 DOSE
     Dates: start: 201211
  7. PRO CAL [Concomitant]
     Indication: OSTEOPOROSIS
     Dosage: 400 UNK, BID

REACTIONS (3)
  - Colon cancer metastatic [Not Recovered/Not Resolved]
  - Metastases to lung [Not Recovered/Not Resolved]
  - Metastases to liver [Not Recovered/Not Resolved]
